FAERS Safety Report 21142803 (Version 1)
Quarter: 2022Q3

REPORT INFORMATION
  Report Type: Spontaneous
  Country: US (occurrence: None)
  Receive Date: 20220728
  Receipt Date: 20220728
  Transmission Date: 20221027
  Serious: No
  Sender: FDA-Public Use
  Company Number: None

PATIENT
  Age: 55 Year
  Sex: Female

DRUGS (1)
  1. AMBRISENTAN [Suspect]
     Active Substance: AMBRISENTAN
     Indication: Pulmonary arterial hypertension
     Dosage: 10MG DAILY ORAL?
     Route: 048
     Dates: start: 20200302, end: 202206

REACTIONS (4)
  - Cerebrovascular accident [None]
  - Hypertension [None]
  - Monoplegia [None]
  - Monoplegia [None]

NARRATIVE: CASE EVENT DATE: 20220722
